FAERS Safety Report 20066061 (Version 2)
Quarter: 2021Q4

REPORT INFORMATION
  Report Type: Report from Study
  Country: KR (occurrence: KR)
  Receive Date: 20211114
  Receipt Date: 20211208
  Transmission Date: 20220303
  Serious: Yes (Hospitalization, Other)
  Sender: FDA-Public Use
  Company Number: KR-ABBVIE-21K-090-4156463-00

PATIENT
  Sex: Male
  Weight: 72 kg

DRUGS (1)
  1. GLECAPREVIR\PIBRENTASVIR [Suspect]
     Active Substance: GLECAPREVIR\PIBRENTASVIR
     Indication: Chronic hepatitis C
     Route: 048
     Dates: start: 20190403, end: 20190515

REACTIONS (1)
  - Hepatic cancer [Recovering/Resolving]

NARRATIVE: CASE EVENT DATE: 20190410
